FAERS Safety Report 25751641 (Version 1)
Quarter: 2025Q3

REPORT INFORMATION
  Report Type: Spontaneous
  Country: EU (occurrence: EU)
  Receive Date: 20250902
  Receipt Date: 20250902
  Transmission Date: 20251021
  Serious: Yes (Death)
  Sender: TEVA
  Company Number: EU-TEVA-VS-3367057

PATIENT
  Age: 58 Year
  Sex: Male

DRUGS (1)
  1. SILDENAFIL [Suspect]
     Active Substance: SILDENAFIL
     Indication: Product used for unknown indication
     Route: 065

REACTIONS (3)
  - Haemorrhage intracranial [Fatal]
  - Intracranial aneurysm [Fatal]
  - Cerebral mass effect [Fatal]
